FAERS Safety Report 26164018 (Version 1)
Quarter: 2025Q4

REPORT INFORMATION
  Report Type: Spontaneous
  Country: US (occurrence: None)
  Receive Date: 20251216
  Receipt Date: 20251216
  Transmission Date: 20260118
  Serious: Yes (Other)
  Sender: FDA-CTU
  Company Number: None

PATIENT
  Age: 71 Year
  Sex: Female

DRUGS (1)
  1. TADALAFIL [Suspect]
     Active Substance: TADALAFIL
     Indication: Pulmonary hypertension
     Dates: start: 20251127, end: 20251212

REACTIONS (4)
  - Visual impairment [None]
  - Vision blurred [None]
  - Kaleidoscope vision [None]
  - Vitreous floaters [None]

NARRATIVE: CASE EVENT DATE: 20251201
